FAERS Safety Report 4388573-9 (Version None)
Quarter: 2004Q2

REPORT INFORMATION
  Report Type: 
  Country: None (occurrence: None)
  Receive Date: 20040628
  Receipt Date: 20040614
  Transmission Date: 20050107
  Serious: Yes (Hospitalization)
  Sender: FDA-Public Use
  Company Number: PANC00302002180

PATIENT
  Age: 17 Year
  Sex: Female
  Weight: 36.9 kg

DRUGS (11)
  1. CREON [Suspect]
     Indication: CYSTIC FIBROSIS PANCREATIC
     Dosage: 6 G DAILY PO
     Route: 048
     Dates: start: 20001114, end: 20040316
  2. PANVITAN (VITAMINS) [Concomitant]
  3. CLARITHROMYCIN [Concomitant]
  4. KAYWAN (PHYTOMENADIONE) [Concomitant]
  5. IBUPROFEN [Concomitant]
  6. VENETLIN (SALBUTAMOL SULFATE) [Concomitant]
  7. SODIUM CHLORIDE INJ [Concomitant]
  8. MUCOSOLVAN (AMBROXOL HYDROCHLORIDE) [Concomitant]
  9. MUCODYNE (CARBOCISTEINE) [Concomitant]
  10. MOHRUS (KETOPROFEN) [Concomitant]
  11. RINDERON-VG [Concomitant]

REACTIONS (11)
  - ABDOMINAL PAIN UPPER [None]
  - ALANINE AMINOTRANSFERASE INCREASED [None]
  - ANAEMIA [None]
  - ASPARTATE AMINOTRANSFERASE INCREASED [None]
  - BLOOD ALBUMIN DECREASED [None]
  - BLOOD PH INCREASED [None]
  - BRONCHITIS CHRONIC [None]
  - CARDIAC FAILURE [None]
  - CONDITION AGGRAVATED [None]
  - PULMONARY HYPERTENSION [None]
  - RIGHT VENTRICULAR FAILURE [None]
